FAERS Safety Report 5808931-2 (Version None)
Quarter: 2008Q3

REPORT INFORMATION
  Report Type: 
  Country: None (occurrence: None)
  Receive Date: 20080714
  Receipt Date: 20080702
  Transmission Date: 20090109
  Serious: Yes (Other)
  Sender: FDA-Public Use
  Company Number: BR-ROCHE-457813

PATIENT
  Age: 15 Year
  Sex: Male
  Weight: 52 kg

DRUGS (2)
  1. ROACUTAN [Suspect]
     Indication: ACNE
     Dosage: STRENGTHS REPORTED AS 10+20MG/CAP.
     Route: 048
     Dates: start: 20060401, end: 20060701
  2. ROACUTAN [Suspect]
     Route: 048
     Dates: start: 20060601, end: 20060727

REACTIONS (7)
  - ACUTE LYMPHOCYTIC LEUKAEMIA [None]
  - BONE PAIN [None]
  - DRY EYE [None]
  - INSOMNIA [None]
  - LIP DRY [None]
  - MYALGIA [None]
  - WEIGHT DECREASED [None]
